FAERS Safety Report 5916041-9 (Version None)
Quarter: 2008Q4

REPORT INFORMATION
  Report Type: 
  Country: None (occurrence: None)
  Receive Date: 20081009
  Receipt Date: 20081009
  Transmission Date: 20090506
  Serious: Yes (Hospitalization)
  Sender: FDA-Public Use
  Company Number: None

PATIENT
  Age: 79 Year
  Sex: Female

DRUGS (2)
  1. ATENOLOL [Suspect]
     Dosage: TABLET 50 MG
  2. PREDNISONE TAB [Suspect]
     Dosage: TABLET 5 MG

REACTIONS (5)
  - CEREBROVASCULAR ACCIDENT [None]
  - HEART RATE DECREASED [None]
  - INCORRECT DOSE ADMINISTERED [None]
  - MEDICATION ERROR [None]
  - PERONEAL NERVE PALSY [None]
